FAERS Safety Report 16409220 (Version 11)
Quarter: 2020Q4

REPORT INFORMATION
  Report Type: Report from Study
  Country: IT (occurrence: IT)
  Receive Date: 20190610
  Receipt Date: 20201221
  Transmission Date: 20210113
  Serious: Yes (Hospitalization)
  Sender: FDA-Public Use
  Company Number: IT-ROCHE-2332223

PATIENT
  Age: 48 Year
  Sex: Female
  Weight: 72 kg

DRUGS (27)
  1. POTASSIUM [Concomitant]
     Active Substance: POTASSIUM
     Indication: BACK PAIN
     Route: 048
     Dates: start: 2018
  2. PARACETAMOLO [Concomitant]
     Active Substance: ACETAMINOPHEN
     Route: 048
     Dates: start: 20200911, end: 20200911
  3. OMEPRAZOLE. [Concomitant]
     Active Substance: OMEPRAZOLE
     Indication: PREMEDICATION
     Dosage: ONCE BEFORE?INFUSION
     Route: 042
     Dates: start: 20200327, end: 20200327
  4. VOLTADVANCE [Concomitant]
     Active Substance: DICLOFENAC SODIUM
     Indication: BACK PAIN
     Route: 048
     Dates: start: 2018
  5. PARACETAMOLO [Concomitant]
     Active Substance: ACETAMINOPHEN
     Route: 048
     Dates: start: 20190830, end: 20190830
  6. METHYLPREDNISOLONE. [Concomitant]
     Active Substance: METHYLPREDNISOLONE
     Indication: PREMEDICATION
     Dosage: ONCE BEFORE?INFUSION
     Route: 042
     Dates: start: 20190830, end: 20190830
  7. OCRELIZUMAB. [Suspect]
     Active Substance: OCRELIZUMAB
     Indication: PROGRESSIVE MULTIPLE SCLEROSIS
     Dosage: ON 22/MAR/2019 AT 13:24 , THE PATIENT RECEIVED MOST RECENT DOSE
     Route: 042
     Dates: start: 20190322
  8. FINDERM [Concomitant]
     Dosage: 2 OVUL, INTRAVAGINAL
     Dates: start: 20190313
  9. SOLU-MEDROL [Concomitant]
     Active Substance: METHYLPREDNISOLONE SODIUM SUCCINATE
     Indication: PREMEDICATION
     Dosage: ONCE BEFORE INFUSION
     Route: 042
     Dates: start: 20190322, end: 20190322
  10. METHYLPREDNISOLONE. [Concomitant]
     Active Substance: METHYLPREDNISOLONE
     Dosage: ONCE BEFORE?INFUSION
     Route: 042
     Dates: start: 20200327, end: 20200327
  11. OMEPRAZOLE. [Concomitant]
     Active Substance: OMEPRAZOLE
     Dosage: ONCE BEFORE?INFUSION
     Route: 042
     Dates: start: 20200911, end: 20200911
  12. CLOPIDOGREL [Concomitant]
     Active Substance: CLOPIDOGREL BISULFATE
     Route: 048
     Dates: start: 20200311
  13. MAGNESIUM [Concomitant]
     Active Substance: MAGNESIUM
     Indication: BACK PAIN
     Route: 048
     Dates: start: 2018
  14. TRIMETON [Concomitant]
     Active Substance: CHLORPHENIRAMINE MALEATE
     Dosage: ONCE BEFORE?INFUSION
     Route: 042
     Dates: start: 20200327, end: 20200327
  15. ROCEFIN [Concomitant]
     Active Substance: CEFTRIAXONE SODIUM
     Route: 030
     Dates: start: 20200826, end: 20200831
  16. PARACETAMOLO [Concomitant]
     Active Substance: ACETAMINOPHEN
     Indication: PREMEDICATION
     Route: 048
     Dates: start: 20190322, end: 20190322
  17. CIPROFLOXACINA [Concomitant]
     Active Substance: CIPROFLOXACIN
     Indication: URINARY TRACT INFECTION
     Route: 048
     Dates: start: 20200227, end: 20200304
  18. TRIMETON [Concomitant]
     Active Substance: CHLORPHENIRAMINE MALEATE
     Indication: PREMEDICATION
     Dosage: ONCE BEFORE?INFUSION
     Route: 042
     Dates: start: 20190322, end: 20190322
  19. ZANTAC [Concomitant]
     Active Substance: RANITIDINE HYDROCHLORIDE
     Route: 042
     Dates: start: 20190322, end: 20190322
  20. METHYLPREDNISOLONE. [Concomitant]
     Active Substance: METHYLPREDNISOLONE
     Dosage: ONCE BEFORE?INFUSION
     Route: 042
     Dates: start: 20200911, end: 20200911
  21. TRIMETON [Concomitant]
     Active Substance: CHLORPHENIRAMINE MALEATE
     Dosage: ONCE BEFORE?INFUSION
     Route: 042
     Dates: start: 20190830, end: 20190830
  22. AMOXICILLINA [Concomitant]
     Active Substance: AMOXICILLIN
     Indication: URINARY TRACT INFECTION
     Route: 048
     Dates: start: 20190502, end: 20190505
  23. AMOXICILLINA [Concomitant]
     Active Substance: AMOXICILLIN
     Route: 048
     Dates: start: 20200219, end: 20200223
  24. TRIMETON [Concomitant]
     Active Substance: CHLORPHENIRAMINE MALEATE
     Dosage: ONCE BEFORE?INFUSION
     Route: 042
     Dates: start: 20200911, end: 20200911
  25. MONURIL [Concomitant]
     Active Substance: FOSFOMYCIN TROMETHAMINE
     Route: 048
     Dates: start: 20200821, end: 20200822
  26. LIORESAL [Concomitant]
     Active Substance: BACLOFEN
     Route: 048
     Dates: start: 2018
  27. ZANTAC [Concomitant]
     Active Substance: RANITIDINE HYDROCHLORIDE
     Route: 042
     Dates: start: 20190830, end: 20190830

REACTIONS (1)
  - Myocardial infarction [Recovered/Resolved]

NARRATIVE: CASE EVENT DATE: 20190601
